FAERS Safety Report 9067899 (Version 2)
Quarter: 2013Q2

REPORT INFORMATION
  Report Type: Spontaneous
  Country: AU (occurrence: AU)
  Receive Date: 20130128
  Receipt Date: 20130617
  Transmission Date: 20140414
  Serious: Yes (Other)
  Sender: FDA-Public Use
  Company Number: AU-ROCHE-1183782

PATIENT
  Age: 36 Year
  Sex: Female

DRUGS (9)
  1. HERCEPTIN [Suspect]
     Indication: PRODUCT USED FOR UNKNOWN INDICATION
     Route: 065
     Dates: end: 201108
  2. CAPECITABINE [Suspect]
     Indication: PRODUCT USED FOR UNKNOWN INDICATION
     Route: 065
     Dates: end: 201205
  3. TAXOTERE [Concomitant]
  4. CARBOPLATIN [Concomitant]
  5. LAPATINIB [Concomitant]
     Route: 065
     Dates: end: 201205
  6. FLUOROURACIL [Concomitant]
  7. EPIRUBICIN [Concomitant]
  8. CYCLOPHOSPHAMIDE [Concomitant]
  9. PACLITAXEL [Concomitant]
     Route: 065
     Dates: end: 201108

REACTIONS (2)
  - Metastatic neoplasm [Unknown]
  - Disease progression [Unknown]
